FAERS Safety Report 14907703 (Version 1)
Quarter: 2018Q2

REPORT INFORMATION
  Report Type: Spontaneous
  Country: US (occurrence: US)
  Receive Date: 20180517
  Receipt Date: 20180517
  Transmission Date: 20180711
  Serious: No
  Sender: FDA-Public Use
  Company Number: US-VANDA PHARMACEUTICALS, INC-2018ILOUS001665

PATIENT
  Sex: Male
  Weight: 90.7 kg

DRUGS (1)
  1. FANAPT [Suspect]
     Active Substance: ILOPERIDONE
     Indication: SCHIZOAFFECTIVE DISORDER
     Dosage: 8 MG 1 QAM, 6 MG 2  QPM
     Route: 048
     Dates: start: 201706

REACTIONS (1)
  - Schizoaffective disorder [Unknown]
